FAERS Safety Report 5477670-2 (Version None)
Quarter: 2007Q4

REPORT INFORMATION
  Report Type: 
  Country: None (occurrence: None)
  Receive Date: 20071003
  Receipt Date: 20071003
  Transmission Date: 20080405
  Serious: No
  Sender: FDA-Public Use
  Company Number: None

PATIENT
  Age: 41 Year
  Sex: Female
  Weight: 57 kg

DRUGS (3)
  1. LEVAQUIN [Suspect]
     Indication: CYSTOSCOPY
     Dosage: 500MG ONCE IV
     Route: 042
     Dates: start: 20070920, end: 20070920
  2. LEVAQUIN [Suspect]
     Indication: PREOPERATIVE CARE
     Dosage: 500MG ONCE IV
     Route: 042
     Dates: start: 20070920, end: 20070920
  3. LEVAQUIN [Suspect]
     Indication: PROPHYLAXIS
     Dosage: 500MG ONCE IV
     Route: 042
     Dates: start: 20070920, end: 20070920

REACTIONS (1)
  - UNEVALUABLE EVENT [None]
